FAERS Safety Report 4916606-7 (Version None)
Quarter: 2006Q1

REPORT INFORMATION
  Report Type: 
  Country: None (occurrence: None)
  Receive Date: 20060220
  Receipt Date: 20060209
  Transmission Date: 20060701
  Serious: Yes (Other)
  Sender: FDA-Public Use
  Company Number: GB-GLAXOSMITHKLINE-B0410273A

PATIENT
  Age: 21 Year
  Sex: Female

DRUGS (2)
  1. LAMICTAL [Suspect]
     Route: 048
  2. CONTRACEPTIVE [Concomitant]

REACTIONS (3)
  - ABORTION INDUCED [None]
  - DRUG EXPOSURE DURING PREGNANCY [None]
  - PREGNANCY ON ORAL CONTRACEPTIVE [None]
